FAERS Safety Report 16866686 (Version 1)
Quarter: 2019Q3

REPORT INFORMATION
  Report Type: Spontaneous
  Country: FR (occurrence: FR)
  Receive Date: 20190930
  Receipt Date: 20190930
  Transmission Date: 20191005
  Serious: Yes (Disabling, Other)
  Sender: FDA-Public Use
  Company Number: PHHY2019FR221023

PATIENT
  Age: 70 Year
  Sex: Female

DRUGS (6)
  1. MIANSERIN HYDROCHLORIDE [Suspect]
     Active Substance: MIANSERIN HYDROCHLORIDE
     Indication: DEPRESSIVE SYMPTOM
     Dosage: 10 MG, QD
     Route: 065
     Dates: start: 201901
  2. MYSOLINE [Suspect]
     Active Substance: PRIMIDONE
     Dosage: 2 DF, QD (1 TABLET IN THE MORNING AND ONE IN THE EVENING)
     Route: 065
  3. DEPAKOTE [Suspect]
     Active Substance: DIVALPROEX SODIUM
     Indication: BIPOLAR DISORDER
     Dosage: 5000 MG, QD  (IN THE EVENING)
     Route: 065
     Dates: start: 2012, end: 20181124
  4. DEPAKOTE [Suspect]
     Active Substance: DIVALPROEX SODIUM
     Dosage: 500 MG, UNK
     Route: 065
  5. GABAPENTIN. [Suspect]
     Active Substance: GABAPENTIN
     Indication: PRODUCT USED FOR UNKNOWN INDICATION
     Dosage: 1500 MG, QD
     Route: 065
     Dates: start: 201706, end: 201901
  6. MYSOLINE [Suspect]
     Active Substance: PRIMIDONE
     Indication: TREMOR
     Dosage: 500 MG, QD
     Route: 065
     Dates: start: 201901

REACTIONS (8)
  - Balance disorder [Unknown]
  - Cerebral disorder [Not Recovered/Not Resolved]
  - Multiple system atrophy [Not Recovered/Not Resolved]
  - Nystagmus [Not Recovered/Not Resolved]
  - Tremor [Recovered/Resolved]
  - Vertigo [Not Recovered/Not Resolved]
  - Vertigo positional [Unknown]
  - Neurodegenerative disorder [Not Recovered/Not Resolved]

NARRATIVE: CASE EVENT DATE: 2019
